FAERS Safety Report 22022146 (Version 1)
Quarter: 2023Q1

REPORT INFORMATION
  Report Type: Spontaneous
  Country: US (occurrence: None)
  Receive Date: 20230220
  Receipt Date: 20230220
  Transmission Date: 20230418
  Serious: Yes (Death)
  Sender: FDA-Public Use
  Company Number: None

PATIENT
  Age: 66 Year
  Sex: Female
  Weight: 55.79 kg

DRUGS (16)
  1. CAPECITABINE [Suspect]
     Active Substance: CAPECITABINE
     Indication: Gastrointestinal neoplasm
     Dosage: FREQUENCY : TWICE A DAY;?OTHER ROUTE : PO DAYS-1-14 OF EACH 21;?
     Route: 050
     Dates: end: 20221213
  2. AVASTIN [Concomitant]
     Active Substance: BEVACIZUMAB
  3. OXALIPLATIN [Concomitant]
     Active Substance: OXALIPLATIN
  4. QUETIAPINE [Concomitant]
     Active Substance: QUETIAPINE
  5. LOMOTIL [Concomitant]
     Active Substance: ATROPINE SULFATE\DIPHENOXYLATE HYDROCHLORIDE
  6. TRAZODONE [Concomitant]
     Active Substance: TRAZODONE HYDROCHLORIDE
  7. OMEPRAZOLE [Concomitant]
     Active Substance: OMEPRAZOLE
  8. MS CONTIN [Concomitant]
  9. ALPRAZOLAM [Concomitant]
     Active Substance: ALPRAZOLAM
  10. OXYCODONE [Concomitant]
     Active Substance: OXYCODONE
  11. ONDANSETRON [Concomitant]
  12. LIDOCAINE\PRILOCAINE [Concomitant]
     Active Substance: LIDOCAINE\PRILOCAINE
  13. NYSTATIN [Concomitant]
  14. ALENDRONATE [Concomitant]
     Active Substance: ALENDRONATE SODIUM
  15. HYDROXYZINE [Concomitant]
     Active Substance: HYDROXYZINE HYDROCHLORIDE
  16. ESCITALOPRAM [Concomitant]
     Active Substance: ESCITALOPRAM OXALATE

REACTIONS (1)
  - Death [None]

NARRATIVE: CASE EVENT DATE: 20230209
